FAERS Safety Report 16544038 (Version 1)
Quarter: 2019Q3

REPORT INFORMATION
  Report Type: Spontaneous
  Country: US (occurrence: US)
  Receive Date: 20190709
  Receipt Date: 20190709
  Transmission Date: 20191004
  Serious: Yes (Other)
  Sender: FDA-Public Use
  Company Number: US-TORRENT-00008977

PATIENT
  Age: 49 Year
  Sex: Male

DRUGS (4)
  1. DAPSONE. [Concomitant]
     Active Substance: DAPSONE
     Indication: PRODUCT USED FOR UNKNOWN INDICATION
     Dosage: UNKNOWN
  2. WARFARIN [Concomitant]
     Active Substance: WARFARIN
     Indication: PRODUCT USED FOR UNKNOWN INDICATION
     Dosage: UNKNOWN
  3. HYDROXYCHLOROQUINE [Concomitant]
     Active Substance: HYDROXYCHLOROQUINE
     Indication: SYSTEMIC LUPUS ERYTHEMATOSUS
     Dosage: UNKNOWN
  4. BUPROPION. [Suspect]
     Active Substance: BUPROPION
     Indication: SMOKING CESSATION THERAPY
     Dosage: UNKNOWN

REACTIONS (2)
  - Lupus-like syndrome [Recovered/Resolved]
  - Condition aggravated [Recovered/Resolved]
